FAERS Safety Report 12706406 (Version 1)
Quarter: 2016Q3

REPORT INFORMATION
  Report Type: Report from Study
  Country: US (occurrence: US)
  Receive Date: 20160901
  Receipt Date: 20160901
  Transmission Date: 20161109
  Serious: No
  Sender: FDA-Public Use
  Company Number: PHEH2016US022053

PATIENT
  Age: 47 Year
  Sex: Female

DRUGS (3)
  1. AFINITOR [Suspect]
     Active Substance: EVEROLIMUS
     Indication: ANGIOMYOLIPOMA
  2. LYSINE [Concomitant]
     Active Substance: LYSINE
     Indication: PRODUCT USED FOR UNKNOWN INDICATION
     Route: 065
  3. AFINITOR [Suspect]
     Active Substance: EVEROLIMUS
     Indication: TUBEROUS SCLEROSIS
     Dosage: 10 MG, QD
     Route: 048
     Dates: start: 20150223

REACTIONS (1)
  - Dysuria [Unknown]

NARRATIVE: CASE EVENT DATE: 20160826
